FAERS Safety Report 4378248-4 (Version None)
Quarter: 2004Q2

REPORT INFORMATION
  Report Type: 
  Country: None (occurrence: None)
  Receive Date: 20040609
  Receipt Date: 20040520
  Transmission Date: 20050107
  Serious: Yes (Hospitalization)
  Sender: FDA-Public Use
  Company Number: JP_040202603

PATIENT
  Age: 64 Year
  Sex: Male
  Weight: 63 kg

DRUGS (2)
  1. DOBUTREX [Suspect]
     Indication: CARDIAC STRESS TEST
     Dosage: 50UG/KG/MIN OTHER
     Route: 050
     Dates: start: 20030609, end: 20030609
  2. DOBUTREX [Suspect]
     Indication: ECHOCARDIOGRAM
     Dosage: 50UG/KG/MIN OTHER
     Route: 050
     Dates: start: 20030609, end: 20030609

REACTIONS (2)
  - CORONARY ARTERY STENOSIS [None]
  - MYOCARDIAL INFARCTION [None]
